FAERS Safety Report 5237840-5 (Version None)
Quarter: 2007Q1

REPORT INFORMATION
  Report Type: 
  Country: None (occurrence: None)
  Receive Date: 20070214
  Receipt Date: 20070202
  Transmission Date: 20070707
  Serious: Yes (Other)
  Sender: FDA-Public Use
  Company Number: US-ELI_LILLY_AND_COMPANY-US200612003703

PATIENT
  Sex: Female

DRUGS (1)
  1. FORTEO [Suspect]
     Indication: OSTEOPOROSIS
     Dosage: UNK, UNK
     Dates: start: 20050601

REACTIONS (4)
  - BREAST CANCER [None]
  - BREAST MICROCALCIFICATION [None]
  - INJECTION SITE DISCOLOURATION [None]
  - MAMMOGRAM ABNORMAL [None]
